FAERS Safety Report 6089751-3 (Version None)
Quarter: 2009Q1

REPORT INFORMATION
  Report Type: 
  Country: None (occurrence: None)
  Receive Date: 20090220
  Receipt Date: 20090209
  Transmission Date: 20090719
  Serious: Yes (Death, Other)
  Sender: FDA-Public Use
  Company Number: 041406

PATIENT
  Age: 4 Year
  Sex: Female

DRUGS (4)
  1. PHENYTOIN SODIUM [Suspect]
     Indication: CONVULSION
     Dosage: 9.6 MG/KG
  2. LAMOTRIGINE [Suspect]
     Indication: CONVULSION
     Dosage: 1.7 MG/KG
  3. VALPROIC ACID [Suspect]
     Indication: CONVULSION
     Dosage: 48 MG/KG
  4. CEFTRIAXONE [Concomitant]

REACTIONS (13)
  - AMMONIA INCREASED [None]
  - BONE MARROW DISORDER [None]
  - DRUG TOXICITY [None]
  - HEPATIC ENZYME INCREASED [None]
  - INTERNATIONAL NORMALISED RATIO DECREASED [None]
  - LIVER INJURY [None]
  - PARAINFLUENZAE VIRUS INFECTION [None]
  - PLATELET COUNT DECREASED [None]
  - PNEUMONIA [None]
  - RASH [None]
  - RED BLOOD CELL COUNT DECREASED [None]
  - STATUS EPILEPTICUS [None]
  - WHITE BLOOD CELL COUNT DECREASED [None]
